FAERS Safety Report 14612185 (Version 3)
Quarter: 2018Q4

REPORT INFORMATION
  Report Type: Report from Study
  Country: US (occurrence: US)
  Receive Date: 20180308
  Receipt Date: 20181227
  Transmission Date: 20190204
  Serious: Yes (Hospitalization)
  Sender: FDA-Public Use
  Company Number: PHEH2018US008470

PATIENT
  Sex: Female

DRUGS (1)
  1. GLEEVEC [Suspect]
     Active Substance: IMATINIB MESYLATE
     Indication: PRODUCT USED FOR UNKNOWN INDICATION
     Dosage: UNK
     Route: 065
     Dates: start: 20180327

REACTIONS (8)
  - Asthenia [Unknown]
  - Malaise [Unknown]
  - Sinusitis [Unknown]
  - Nervousness [Unknown]
  - Neoplasm malignant [Unknown]
  - Rhinorrhoea [Unknown]
  - Dysphonia [Unknown]
  - Cough [Unknown]
